FAERS Safety Report 15531429 (Version 6)
Quarter: 2019Q1

REPORT INFORMATION
  Report Type: Report from Study
  Country: US (occurrence: US)
  Receive Date: 20181019
  Receipt Date: 20190210
  Transmission Date: 20190417
  Serious: Yes (Hospitalization)
  Sender: FDA-Public Use
  Company Number: US-ALEXION PHARMACEUTICALS INC.-A201813591

PATIENT
  Age: 11 Year
  Sex: Female
  Weight: 15 kg

DRUGS (40)
  1. STRENSIQ [Suspect]
     Active Substance: ASFOTASE ALFA
     Dosage: 2 MG/KG, TIW
     Route: 058
     Dates: start: 20160517
  2. REGLAN [Concomitant]
     Active Substance: METOCLOPRAMIDE HYDROCHLORIDE
     Indication: PRODUCT USED FOR UNKNOWN INDICATION
     Dosage: 2 MG, QID
     Route: 048
     Dates: start: 20170505
  3. ATROVENT HFA [Concomitant]
     Active Substance: IPRATROPIUM BROMIDE
     Indication: PRODUCT USED FOR UNKNOWN INDICATION
     Dosage: 2 PUFFS, QID
     Route: 055
  4. LORATADINE. [Concomitant]
     Active Substance: LORATADINE
     Indication: PRODUCT USED FOR UNKNOWN INDICATION
     Dosage: 5 MG, QD AM, G-TUBE
     Route: 050
  5. STRENSIQ [Suspect]
     Active Substance: ASFOTASE ALFA
     Indication: HYPOPHOSPHATASIA
     Dosage: 28 MG, TIW
     Route: 058
     Dates: start: 201605
  6. FLAGYL [Concomitant]
     Active Substance: METRONIDAZOLE\METRONIDAZOLE HYDROCHLORIDE
     Indication: HAEMATOCHEZIA
     Dosage: 93 MG, TID
     Route: 065
     Dates: start: 20170603
  7. HUMIRA [Concomitant]
     Active Substance: ADALIMUMAB
     Indication: COLITIS ULCERATIVE
     Dosage: 20 MG, Q2W
     Route: 058
     Dates: start: 20170822
  8. DIASTAT ACUDIAL [Concomitant]
     Active Substance: DIAZEPAM
     Indication: SEIZURE
     Dosage: 5 MG, PRN
     Route: 054
     Dates: start: 20171215
  9. ACETAMINOPHEN. [Concomitant]
     Active Substance: ACETAMINOPHEN
     Indication: PRODUCT USED FOR UNKNOWN INDICATION
     Dosage: 160 MG, Q4H PRN, G-TUBE
     Route: 050
  10. MELATONIN [Concomitant]
     Active Substance: MELATONIN
     Dosage: 6-9 MG, QHS, G-TUBE
     Route: 050
  11. METHYLPREDNISOLONE SODIUM SUCCINATE. [Concomitant]
     Active Substance: METHYLPREDNISOLONE SODIUM SUCCINATE
     Indication: HAEMATOCHEZIA
     Dosage: 15 MG, QD
     Route: 042
     Dates: start: 20170605
  12. REGLAN [Concomitant]
     Active Substance: METOCLOPRAMIDE HYDROCHLORIDE
     Dosage: 2 MG, QID BY G-TUBE
     Route: 050
     Dates: start: 20181001
  13. MYCOSTATIN [Concomitant]
     Active Substance: NYSTATIN
     Indication: STOMA CARE
     Dosage: 1 G (1 APPLICATION), QD
     Route: 061
     Dates: start: 20180724
  14. MIRALAX [Concomitant]
     Active Substance: POLYETHYLENE GLYCOL 3350
     Indication: PRODUCT USED FOR UNKNOWN INDICATION
     Dosage: 0.5 SCOOP, QD, G-TUBE
     Route: 050
  15. ATROVENT HFA [Concomitant]
     Active Substance: IPRATROPIUM BROMIDE
     Dosage: 2 PUFFS, Q8H
     Route: 055
     Dates: start: 20180806
  16. MELATONIN [Concomitant]
     Active Substance: MELATONIN
     Indication: PRODUCT USED FOR UNKNOWN INDICATION
     Dosage: 3 MG, QHS, G-TUBE
     Route: 050
  17. PRILOSEC [Concomitant]
     Active Substance: OMEPRAZOLE MAGNESIUM
     Indication: GASTROOESOPHAGEAL REFLUX DISEASE
     Dosage: 13 MG, QD
     Route: 048
     Dates: start: 20170505
  18. AZULFIDINE [Concomitant]
     Active Substance: SULFASALAZINE
     Dosage: 375 MG, TID, G-TUBE
     Route: 050
     Dates: start: 20180904
  19. AZULFIDINE [Concomitant]
     Active Substance: SULFASALAZINE
     Dosage: 375 MG, TID, G-TUBE
     Route: 050
     Dates: start: 20181002, end: 20181008
  20. FOLVITE [Concomitant]
     Active Substance: FOLIC ACID
     Indication: PRODUCT USED FOR UNKNOWN INDICATION
     Dosage: 1 MG, QD AM, G-TUBE
     Route: 050
     Dates: start: 20180904
  21. ATARAX [Concomitant]
     Active Substance: HYDROXYZINE HYDROCHLORIDE
     Indication: PRODUCT USED FOR UNKNOWN INDICATION
     Dosage: 15 MG, QHS PRN, G-TUBE
     Route: 050
  22. CUVPOSA                            /00196202/ [Concomitant]
     Dosage: 1 MG, Q8H PRN - G-TUBE
     Route: 050
     Dates: start: 20180724
  23. PROTONIX [Concomitant]
     Active Substance: PANTOPRAZOLE SODIUM
     Indication: GASTRIC PH DECREASED
     Dosage: UNK
     Route: 065
     Dates: start: 20170425
  24. REGLAN [Concomitant]
     Active Substance: METOCLOPRAMIDE HYDROCHLORIDE
     Dosage: 10 MG, QID, G-TUBE
     Route: 050
  25. REGLAN [Concomitant]
     Active Substance: METOCLOPRAMIDE HYDROCHLORIDE
     Dosage: 2 MG, QID BY G-TUBE
     Route: 050
     Dates: start: 20181008
  26. SODIUM CHLORIDE. [Concomitant]
     Active Substance: SODIUM CHLORIDE
     Dosage: 3 VIALS, VIA NEBULIZER Q4
     Route: 050
     Dates: start: 20180829
  27. SODIUM CHLORIDE. [Concomitant]
     Active Substance: SODIUM CHLORIDE
     Indication: PRODUCT USED FOR UNKNOWN INDICATION
     Dosage: 4 MEQ, BID, G-TUBE
     Route: 050
  28. SIMETHICONE (DIMETHICONE) [Concomitant]
     Active Substance: DIMETHICONE
     Indication: FLATULENCE
     Dosage: 20 MG, PRN, G-TUBE
     Route: 050
  29. CUVPOSA                            /00196202/ [Concomitant]
     Indication: GASTRIN SECRETION DISORDER
     Dosage: 0.5-1.0 MG, QID, G-TUBE
     Route: 050
  30. AZULFIDINE [Concomitant]
     Active Substance: SULFASALAZINE
     Indication: PRODUCT USED FOR UNKNOWN INDICATION
     Dosage: 250 MG, TID, G-TUBE
     Route: 050
  31. POLY-VI-SOL                        /00200301/ [Concomitant]
     Dosage: 1 ML, QD
     Route: 048
     Dates: start: 20180405
  32. BACTROBAN [Concomitant]
     Active Substance: MUPIROCIN\MUPIROCIN CALCIUM
     Indication: PRODUCT USED FOR UNKNOWN INDICATION
     Dosage: UNK UNK, PRN
     Route: 061
  33. SIMETHICONE (DIMETHICONE) [Concomitant]
     Active Substance: DIMETHICONE
     Indication: ABDOMINAL PAIN UPPER
  34. PRILOSEC [Concomitant]
     Active Substance: OMEPRAZOLE MAGNESIUM
     Dosage: 13 MG, QD (G-TUBE ROUTE)
     Route: 050
     Dates: start: 20180707
  35. HUMIRA [Concomitant]
     Active Substance: ADALIMUMAB
     Dosage: 20 MG, Q2W
     Route: 058
     Dates: start: 20180802
  36. EUCERIN                            /01160201/ [Concomitant]
     Active Substance: LANOLIN\MINERAL OIL\PETROLATUM
     Indication: PRODUCT USED FOR UNKNOWN INDICATION
     Dosage: UNK UNK, PRN
     Route: 061
  37. CETAPHIL                           /02314901/ [Concomitant]
     Active Substance: COSMETICS
     Indication: PRODUCT USED FOR UNKNOWN INDICATION
     Dosage: UNK UNK, QD
     Route: 061
  38. IBUPROFEN. [Concomitant]
     Active Substance: IBUPROFEN
     Indication: PRODUCT USED FOR UNKNOWN INDICATION
     Dosage: 100 MG, Q6H PRN, G-TUBE
     Route: 050
  39. POLY-VI-SOL                        /00200301/ [Concomitant]
     Indication: PRODUCT USED FOR UNKNOWN INDICATION
     Dosage: UNK ML, QD AM, G-TUBE
     Route: 050
  40. KEPPRA [Concomitant]
     Active Substance: LEVETIRACETAM
     Indication: SEIZURE
     Dosage: 300 MG, BID, G-TUBE
     Route: 050
     Dates: start: 20180829

REACTIONS (1)
  - Febrile neutropenia [Recovered/Resolved]

NARRATIVE: CASE EVENT DATE: 20180927
